FAERS Safety Report 24221655 (Version 1)
Quarter: 2024Q3

REPORT INFORMATION
  Report Type: Report from Study
  Country: US (occurrence: US)
  Receive Date: 20240819
  Receipt Date: 20240819
  Transmission Date: 20241016
  Serious: Yes (Hospitalization, Other)
  Sender: GILEAD
  Company Number: US-GILEAD-2024-0669557

PATIENT
  Sex: Female

DRUGS (4)
  1. AMBRISENTAN [Suspect]
     Active Substance: AMBRISENTAN
     Indication: Pulmonary hypertension
     Dosage: UNK
     Route: 065
     Dates: start: 20240216
  2. AMBRISENTAN [Suspect]
     Active Substance: AMBRISENTAN
     Dosage: TAKE 1 TABLET BY MOUTH ONCE DAILY
     Route: 048
  3. SILDENAFIL [Suspect]
     Active Substance: SILDENAFIL
     Indication: Product used for unknown indication
     Dosage: UNK
     Route: 065
  4. ZITHROMAX [Concomitant]
     Active Substance: AZITHROMYCIN DIHYDRATE

REACTIONS (14)
  - Insomnia [Unknown]
  - Coordination abnormal [Unknown]
  - Blindness [Unknown]
  - Sinus disorder [Unknown]
  - Blood sodium decreased [Unknown]
  - Kidney infection [Unknown]
  - Dehydration [Unknown]
  - Confusional state [Unknown]
  - Disorientation [Unknown]
  - Cough [Unknown]
  - Nasal congestion [Unknown]
  - Rhinitis [Unknown]
  - Dyspnoea exertional [Unknown]
  - Drug ineffective [Unknown]
